FAERS Safety Report 6293490-3 (Version None)
Quarter: 2009Q3

REPORT INFORMATION
  Report Type: 
  Country: None (occurrence: None)
  Receive Date: 20090803
  Receipt Date: 20090728
  Transmission Date: 20100115
  Serious: Yes (Other)
  Sender: FDA-Public Use
  Company Number: US-BIOGENIDEC-2009BI022524

PATIENT
  Age: 41 Year
  Sex: Female

DRUGS (2)
  1. AVONEX [Suspect]
     Indication: MULTIPLE SCLEROSIS
     Route: 030
     Dates: start: 19960101, end: 20020101
  2. AVONEX [Suspect]
     Route: 030
     Dates: start: 20090715

REACTIONS (2)
  - HODGKIN'S DISEASE [None]
  - LUNG NEOPLASM MALIGNANT [None]
